FAERS Safety Report 5270131-5 (Version None)
Quarter: 2007Q1

REPORT INFORMATION
  Report Type: 
  Country: None (occurrence: None)
  Receive Date: 20070320
  Receipt Date: 20070313
  Transmission Date: 20070707
  Serious: Yes (Death, Other)
  Sender: FDA-Public Use
  Company Number: US-JNJFOC-20070303321

PATIENT
  Age: 58 Year
  Sex: Female

DRUGS (7)
  1. DURAGESIC-100 [Suspect]
     Indication: PAIN
     Route: 062
  2. VICODIN [Concomitant]
     Route: 065
  3. XANAX [Concomitant]
     Route: 065
  4. HYDROCODINE [Concomitant]
     Route: 065
  5. NITROQUICK [Concomitant]
     Route: 065
  6. GABAPENTIN [Concomitant]
     Route: 065
  7. ALPRAZOLAM [Concomitant]
     Route: 065

REACTIONS (3)
  - ANALGESIC DRUG LEVEL ABOVE THERAPEUTIC [None]
  - DEATH [None]
  - DRUG PRESCRIBING ERROR [None]
